FAERS Safety Report 12255320 (Version 1)
Quarter: 2016Q2

REPORT INFORMATION
  Report Type: Spontaneous
  Country: US (occurrence: US)
  Receive Date: 20160412
  Receipt Date: 20160412
  Transmission Date: 20160815
  Serious: Yes (Other)
  Sender: FDA-Public Use
  Company Number: US-BEH-2016060854

PATIENT
  Sex: Female
  Weight: 72 kg

DRUGS (20)
  1. HIZENTRA [Suspect]
     Active Substance: HUMAN IMMUNOGLOBULIN G
     Indication: IMMUNODEFICIENCY COMMON VARIABLE
     Route: 058
  2. MACROBID [Concomitant]
     Active Substance: NITROFURANTOIN\NITROFURANTOIN MONOHYDRATE
  3. BUPROPION. [Concomitant]
     Active Substance: BUPROPION
  4. DIPHENHYDRAMINE. [Concomitant]
     Active Substance: DIPHENHYDRAMINE
  5. ZOLPIDEM [Concomitant]
     Active Substance: ZOLPIDEM\ZOLPIDEM TARTRATE
  6. EPIPEN [Concomitant]
     Active Substance: EPINEPHRINE
  7. ZITHROMAX [Concomitant]
     Active Substance: AZITHROMYCIN DIHYDRATE
  8. VICODIN [Concomitant]
     Active Substance: ACETAMINOPHEN\HYDROCODONE BITARTRATE
  9. PRAVASTATIN [Concomitant]
     Active Substance: PRAVASTATIN\PRAVASTATIN SODIUM
  10. LIDOCAINE. [Concomitant]
     Active Substance: LIDOCAINE
  11. XANAX [Concomitant]
     Active Substance: ALPRAZOLAM
  12. METOCLOPRAMIDE. [Concomitant]
     Active Substance: METOCLOPRAMIDE
  13. TIZANIDINE. [Concomitant]
     Active Substance: TIZANIDINE
  14. VITAMIN D [Concomitant]
     Active Substance: CHOLECALCIFEROL
  15. IBUPROFEN. [Concomitant]
     Active Substance: IBUPROFEN
  16. CENTRUM SILVER TABLET [Concomitant]
  17. SERTRALINE [Concomitant]
     Active Substance: SERTRALINE HYDROCHLORIDE
  18. VALTREX [Concomitant]
     Active Substance: VALACYCLOVIR HYDROCHLORIDE
  19. COENZYME Q-10 [Concomitant]
  20. DOCUSATE [Concomitant]
     Active Substance: DOCUSATE

REACTIONS (1)
  - Pneumonia [Unknown]
